FAERS Safety Report 9665886 (Version 4)
Quarter: 2013Q4

REPORT INFORMATION
  Report Type: Spontaneous
  Country: US (occurrence: US)
  Receive Date: 20131104
  Receipt Date: 20131118
  Transmission Date: 20140711
  Serious: Yes (Other)
  Sender: FDA-Public Use
  Company Number: US-BAXTER-2013BAX042832

PATIENT
  Age: 71 Year
  Sex: Male

DRUGS (1)
  1. DIANEAL LOW CALCIUM [Suspect]
     Indication: PERITONEAL DIALYSIS
     Route: 033
     Dates: start: 201108

REACTIONS (4)
  - Peritonitis bacterial [Recovering/Resolving]
  - Cough [Not Recovered/Not Resolved]
  - Peritoneal dialysis complication [Unknown]
  - Musculoskeletal pain [Recovering/Resolving]
